FAERS Safety Report 5637493-8 (Version None)
Quarter: 2008Q1

REPORT INFORMATION
  Report Type: 
  Country: None (occurrence: None)
  Receive Date: 20080219
  Receipt Date: 20080204
  Transmission Date: 20080703
  Serious: Yes (Disabling)
  Sender: FDA-Public Use
  Company Number: 163-21880-08010411

PATIENT
  Age: 57 Year
  Sex: Female

DRUGS (2)
  1. REVLIMID [Suspect]
     Indication: MULTIPLE MYELOMA
     Dosage: 25 MG, DAILY X 21 DAYS, EVERY 28 DAYS, ORAL
     Route: 048
     Dates: start: 20071215
  2. ERYTHROPOETIN (EPOETIN ALFA) [Concomitant]

REACTIONS (1)
  - DERMATITIS BULLOUS [None]
